FAERS Safety Report 6677632-3 (Version None)
Quarter: 2010Q2

REPORT INFORMATION
  Report Type: 
  Country: None (occurrence: None)
  Receive Date: 20100412
  Receipt Date: 20100305
  Transmission Date: 20101027
  Serious: No
  Sender: FDA-Public Use
  Company Number: US-ALEXION-A201000256

PATIENT
  Sex: Female

DRUGS (2)
  1. SOLIRIS [Suspect]
     Indication: PAROXYSMAL NOCTURNAL HAEMOGLOBINURIA
     Dosage: 600 MG, WHILE ENROLLED IN A TRIAL
     Route: 042
     Dates: start: 20050901
  2. SOLIRIS [Suspect]
     Dosage: 900 MG, Q2W (FIRST 900 MG COMMERCIAL DOSE)
     Route: 042
     Dates: start: 20070522

REACTIONS (5)
  - BACK PAIN [None]
  - CHROMATURIA [None]
  - DYSPHAGIA [None]
  - FATIGUE [None]
  - GASTROENTERITIS VIRAL [None]
